FAERS Safety Report 4534905-8 (Version None)
Quarter: 2004Q4

REPORT INFORMATION
  Report Type: 
  Country: None (occurrence: None)
  Receive Date: 20041222
  Receipt Date: 20040722
  Transmission Date: 20050328
  Serious: Yes (Other)
  Sender: FDA-Public Use
  Company Number: US-BRISTOL-MYERS SQUIBB COMPANY-12648465

PATIENT
  Sex: Male

DRUGS (2)
  1. PRAVACHOL [Suspect]
     Dosage: DURATION OF THERAPY: ^FEW YEARS^
     Route: 048
  2. ZETIA [Suspect]

REACTIONS (1)
  - ALANINE AMINOTRANSFERASE INCREASED [None]
